FAERS Safety Report 16708355 (Version 4)
Quarter: 2020Q4

REPORT INFORMATION
  Report Type: Spontaneous
  Country: US (occurrence: US)
  Receive Date: 20190816
  Receipt Date: 20201118
  Transmission Date: 20210113
  Serious: Yes (Hospitalization)
  Sender: FDA-Public Use
  Company Number: US-CELGENEUS-USA-20190804887

PATIENT
  Age: 69 Year
  Sex: Male

DRUGS (20)
  1. ABRAXANE [Suspect]
     Active Substance: PACLITAXEL
     Dosage: 132 MILLIGRAM
     Route: 042
     Dates: start: 20191008, end: 20191008
  2. DURVALUMAB. [Suspect]
     Active Substance: DURVALUMAB
     Dosage: 1500 MILLIGRAM
     Route: 042
     Dates: start: 20190910, end: 20190910
  3. CARBOPLATIN. [Suspect]
     Active Substance: CARBOPLATIN
     Dosage: 491 MILLIGRAM
     Route: 042
     Dates: start: 20190813, end: 20190813
  4. ABRAXANE [Suspect]
     Active Substance: PACLITAXEL
     Dosage: 171 MILLIGRAM
     Route: 042
     Dates: start: 20190828, end: 20190828
  5. ABRAXANE [Suspect]
     Active Substance: PACLITAXEL
     Dosage: 132 MILLIGRAM
     Route: 042
     Dates: start: 20190917, end: 20190917
  6. ABRAXANE [Suspect]
     Active Substance: PACLITAXEL
     Dosage: 132 MILLIGRAM
     Route: 042
     Dates: start: 20191002, end: 20191002
  7. CARBOPLATIN. [Suspect]
     Active Substance: CARBOPLATIN
     Indication: NON-SMALL CELL LUNG CANCER STAGE IV
     Dosage: 577 MILLIGRAM
     Route: 042
     Dates: start: 20190702, end: 20190702
  8. CARBOPLATIN. [Suspect]
     Active Substance: CARBOPLATIN
     Dosage: 397 MILLIGRAM
     Route: 042
     Dates: start: 20190910, end: 20190910
  9. ABRAXANE [Suspect]
     Active Substance: PACLITAXEL
     Dosage: 171 MILLIGRAM
     Route: 042
     Dates: start: 20190820, end: 20190820
  10. DURVALUMAB. [Suspect]
     Active Substance: DURVALUMAB
     Dosage: 1500 MILLIGRAM
     Route: 042
     Dates: start: 20190813, end: 20190813
  11. ABRAXANE [Suspect]
     Active Substance: PACLITAXEL
     Dosage: 132 MILLIGRAM
     Route: 042
     Dates: start: 20190910, end: 20190910
  12. DURVALUMAB. [Suspect]
     Active Substance: DURVALUMAB
     Indication: NON-SMALL CELL LUNG CANCER STAGE IV
     Dosage: 1500 MILLIGRAM
     Route: 042
     Dates: start: 20190702, end: 20190702
  13. ABRAXANE [Suspect]
     Active Substance: PACLITAXEL
     Dosage: 201 MILLIGRAM
     Route: 042
     Dates: start: 20190716, end: 20190716
  14. ABRAXANE [Suspect]
     Active Substance: PACLITAXEL
     Dosage: 201 MILLIGRAM
     Route: 042
     Dates: start: 20190723, end: 20190723
  15. ABRAXANE [Suspect]
     Active Substance: PACLITAXEL
     Dosage: 171 MILLIGRAM
     Route: 042
     Dates: start: 20190813, end: 20190813
  16. ABRAXANE [Suspect]
     Active Substance: PACLITAXEL
     Dosage: 132 MILLIGRAM
     Route: 042
     Dates: start: 20191015, end: 20191015
  17. DURVALUMAB. [Suspect]
     Active Substance: DURVALUMAB
     Dosage: 1500 MILLIGRAM
     Route: 042
     Dates: start: 20191002, end: 20191002
  18. ABRAXANE [Suspect]
     Active Substance: PACLITAXEL
     Indication: NON-SMALL CELL LUNG CANCER STAGE IV
     Dosage: 201 MILLIGRAM
     Route: 042
     Dates: start: 20190702, end: 20190702
  19. ABRAXANE [Suspect]
     Active Substance: PACLITAXEL
     Dosage: 132 MILLIGRAM
     Route: 042
     Dates: start: 20190924, end: 20190924
  20. CARBOPLATIN. [Suspect]
     Active Substance: CARBOPLATIN
     Dosage: 397 MILLIGRAM
     Route: 042
     Dates: start: 20191002, end: 20191002

REACTIONS (1)
  - Chronic obstructive pulmonary disease [Recovered/Resolved]

NARRATIVE: CASE EVENT DATE: 20190805
